FAERS Safety Report 8453757-7 (Version None)
Quarter: 2012Q2

REPORT INFORMATION
  Report Type: 
  Country: None (occurrence: None)
  Receive Date: 20120620
  Receipt Date: 20120611
  Transmission Date: 20120825
  Serious: Yes (Disabling)
  Sender: FDA-Public Use
  Company Number: JP-ASTRAZENECA-2012SE31722

PATIENT
  Age: 37 Year
  Sex: Female

DRUGS (2)
  1. ROPIVACAINE HYDROCHLORIDE [Suspect]
     Indication: POSTOPERATIVE ANALGESIA
     Dosage: 4-7 ML
     Route: 008
     Dates: start: 20120331, end: 20120402
  2. FENTANYL [Concomitant]
     Dosage: 18 ML, 9 AMPULES
     Route: 065

REACTIONS (2)
  - SENSORY DISTURBANCE [None]
  - ANAESTHESIA [None]
